FAERS Safety Report 7952351-1 (Version None)
Quarter: 2011Q4

REPORT INFORMATION
  Report Type: 
  Country: None (occurrence: None)
  Receive Date: 20111129
  Receipt Date: 20111114
  Transmission Date: 20120403
  Serious: Yes (Other)
  Sender: FDA-Public Use
  Company Number: EU-2011-10138

PATIENT
  Age: 67 Year
  Sex: Male

DRUGS (12)
  1. DIGOXIN [Concomitant]
  2. NOVAMINSULFON [Concomitant]
  3. PLETAL [Suspect]
     Dosage: 100 MG MILLIGRAM(S), , ORAL
     Route: 048
  4. ENALAPRIL MALEATE [Concomitant]
  5. ASPIRIN [Concomitant]
  6. ZOPICLONE [Concomitant]
  7. MOLSIDOMIN (MOLSIDOMINE) [Concomitant]
  8. METOHEXAL (METOPROLOL SUCCINATE) [Concomitant]
  9. PANTOPRAZOLE [Concomitant]
  10. PIRETANID (PIRETANIDE) [Concomitant]
  11. OXAZEPAM [Concomitant]
  12. FENTANYL-100 [Concomitant]

REACTIONS (2)
  - PROSTATOMEGALY [None]
  - FEMORAL ARTERY OCCLUSION [None]
